FAERS Safety Report 9224524 (Version 3)
Quarter: 2013Q2

REPORT INFORMATION
  Report Type: Spontaneous
  Country: CY (occurrence: CY)
  Receive Date: 20130411
  Receipt Date: 20130522
  Transmission Date: 20140414
  Serious: Yes (Other)
  Sender: FDA-Public Use
  Company Number: CY-ABBOTT-13X-041-1073762-00

PATIENT
  Sex: Female

DRUGS (2)
  1. TEVETEN PLUS [Suspect]
     Indication: HYPERTENSION
     Dosage: DOSAGE FORM: 600 MG/12.5 MG
     Route: 048
     Dates: start: 201210, end: 20130504
  2. THYROXINE [Concomitant]
     Indication: HYPOTHYROIDISM

REACTIONS (2)
  - Oedema peripheral [Not Recovered/Not Resolved]
  - Joint swelling [Not Recovered/Not Resolved]
